FAERS Safety Report 17149157 (Version 2)
Quarter: 2020Q1

REPORT INFORMATION
  Report Type: Spontaneous
  Country: RO (occurrence: RO)
  Receive Date: 20191213
  Receipt Date: 20200110
  Transmission Date: 20200409
  Serious: Yes (Other)
  Sender: FDA-Public Use
  Company Number: RO-TEVA-2019-RO-1150108

PATIENT
  Age: 56 Year
  Sex: Female

DRUGS (5)
  1. LEFLUNOMIDE. [Suspect]
     Active Substance: LEFLUNOMIDE
     Indication: RHEUMATOID ARTHRITIS
     Dosage: 20 MG, DAILY
     Dates: start: 2008
  2. ALPHA D3 [Concomitant]
     Active Substance: ALFACALCIDOL
     Dosage: 0.5 UG/24H, 2X/DAY, 10 DAYS PER MONTH
  3. ENBREL [Suspect]
     Active Substance: ETANERCEPT
     Indication: RHEUMATOID ARTHRITIS
     Dosage: 50 MG, WEEKLY
     Dates: start: 2008
  4. LECANIDIPINE [Concomitant]
     Dosage: 10 MG, DAILY
  5. CALCIUM LACTATE [Concomitant]
     Active Substance: CALCIUM LACTATE
     Dosage: 1000 MG, DAILY, 10 DAYS PER MONTH

REACTIONS (5)
  - Osteopenia [Unknown]
  - Essential hypertension [Unknown]
  - Blood iron decreased [Unknown]
  - Blood creatinine increased [Unknown]
  - Chronic hepatitis B [Unknown]

NARRATIVE: CASE EVENT DATE: 2015
